FAERS Safety Report 24304538 (Version 1)
Quarter: 2024Q3

REPORT INFORMATION
  Report Type: Other
  Country: US (occurrence: US)
  Receive Date: 20240910
  Receipt Date: 20240910
  Transmission Date: 20241017
  Serious: No
  Sender: SIGMA TAU
  Company Number: US-LEADIANT GMBH-2023STPI000295

PATIENT
  Sex: Male

DRUGS (1)
  1. MATULANE [Suspect]
     Active Substance: PROCARBAZINE HYDROCHLORIDE
     Indication: Hodgkin^s disease mixed cellularity stage III
     Dosage: 50 MILLIGRAMS, 2 CAPSULES (100MG TOTAL) FOR 14 DAYS EVERY 28 DAYS
     Route: 048
     Dates: start: 20221230

REACTIONS (5)
  - Pancytopenia [Unknown]
  - Fatigue [Unknown]
  - Anaemia [Recovering/Resolving]
  - Neutropenia [Recovered/Resolved]
  - Thrombocytopenia [Not Recovered/Not Resolved]
